FAERS Safety Report 25981574 (Version 2)
Quarter: 2025Q4

REPORT INFORMATION
  Report Type: Spontaneous
  Country: US (occurrence: US)
  Receive Date: 20251030
  Receipt Date: 20251212
  Transmission Date: 20260117
  Serious: No
  Sender: ABBVIE
  Company Number: US-ABBVIE-6519428

PATIENT
  Sex: Female

DRUGS (1)
  1. RESTASIS [Suspect]
     Active Substance: CYCLOSPORINE
     Indication: Product used for unknown indication
     Dosage: 0.05% 60 X 0.4 ML
     Route: 047

REACTIONS (3)
  - Poor quality product administered [Unknown]
  - Product contamination microbial [Unknown]
  - Eye irritation [Unknown]
